FAERS Safety Report 9002288 (Version 1)
Quarter: 2013Q1

REPORT INFORMATION
  Report Type: Spontaneous
  Country: US (occurrence: US)
  Receive Date: 20130107
  Receipt Date: 20130107
  Transmission Date: 20140127
  Serious: Yes (Death)
  Sender: FDA-Public Use
  Company Number: US-PFIZER INC-2013002818

PATIENT
  Age: 89 Year
  Sex: Male
  Weight: 68.03 kg

DRUGS (6)
  1. PROTONIX [Suspect]
     Indication: BLOOD PRESSURE ABNORMAL
     Dosage: 40 MG, DAILY
     Dates: start: 2006
  2. LIPITOR [Suspect]
     Indication: BLOOD CHOLESTEROL INCREASED
     Dosage: 20 MG, DAILY
     Dates: start: 2006
  3. ALBUTEROL [Concomitant]
     Indication: CHRONIC OBSTRUCTIVE PULMONARY DISEASE
     Dosage: 250 UG, UNK
  4. AMLODIPINE [Concomitant]
     Dosage: 10 MG, DAILY
  5. POTASSIUM CHLORIDE [Concomitant]
     Dosage: 20 MEQ, UNK
  6. METOPROLOL [Concomitant]
     Dosage: 50 MG, DAILY

REACTIONS (1)
  - Death [Fatal]
